FAERS Safety Report 14199835 (Version 2)
Quarter: 2017Q4

REPORT INFORMATION
  Report Type: Report from Study
  Country: US (occurrence: HU)
  Receive Date: 20171117
  Receipt Date: 20171128
  Transmission Date: 20180321
  Serious: Yes (Other)
  Sender: FDA-Public Use
  Company Number: US-SUNOVION-2017SUN004927

PATIENT

DRUGS (6)
  1. VASODILATORS [Concomitant]
     Active Substance: UNSPECIFIED INGREDIENT
     Dosage: UNK
     Dates: start: 2009
  2. RETAFYLLIN [Suspect]
     Active Substance: THEOPHYLLINE
     Indication: CHRONIC OBSTRUCTIVE PULMONARY DISEASE
     Dosage: 200 MG, BID
     Route: 065
     Dates: start: 201710, end: 20171105
  3. MICARDISPLUS [Concomitant]
     Active Substance: HYDROCHLOROTHIAZIDE\TELMISARTAN
  4. INDACATEROL AND GLYCOPYRROLATE [Suspect]
     Active Substance: GLYCOPYRROLATE\INDACATEROL MALEATE
     Indication: CHRONIC OBSTRUCTIVE PULMONARY DISEASE
     Dosage: 1 DF (GLYCOPYRRONIUM BROMIDE (DOSE: UNKNOWN), 85 UG OF INDACATEROL),, UNK
     Route: 055
     Dates: start: 20171030
  5. MUSCLE RELAXANTS [Concomitant]
     Active Substance: UNSPECIFIED INGREDIENT
     Dosage: UNK
     Dates: start: 2009
  6. CONCOR [Concomitant]
     Active Substance: BISOPROLOL FUMARATE

REACTIONS (8)
  - Arrhythmia [Recovered/Resolved]
  - Hypotension [Recovering/Resolving]
  - Spinal disorder [Unknown]
  - Blood pressure abnormal [Unknown]
  - Headache [Recovering/Resolving]
  - Cardiovascular disorder [Unknown]
  - Renal disorder [Unknown]
  - Fatigue [Recovering/Resolving]

NARRATIVE: CASE EVENT DATE: 20171101
